FAERS Safety Report 21893191 (Version 1)
Quarter: 2023Q1

REPORT INFORMATION
  Report Type: Spontaneous
  Country: CA (occurrence: CA)
  Receive Date: 20230121
  Receipt Date: 20230121
  Transmission Date: 20230418
  Serious: Yes (Other)
  Sender: FDA-Public Use
  Company Number: CA-CELLTRION INC.-2022CA001158

PATIENT

DRUGS (7)
  1. INFLECTRA [Suspect]
     Active Substance: INFLIXIMAB-DYYB
     Indication: Rheumatoid arthritis
     Dosage: 200 MG, EVERY 6 WEEK
     Route: 042
     Dates: start: 20191010
  2. INFLECTRA [Suspect]
     Active Substance: INFLIXIMAB-DYYB
     Dosage: 200 MG, EVERY 6 WEEK
     Route: 042
     Dates: start: 20191231
  3. INFLECTRA [Suspect]
     Active Substance: INFLIXIMAB-DYYB
     Dosage: 200 MG, EVERY 6 WEEK
     Route: 042
     Dates: start: 20211217
  4. INFLECTRA [Suspect]
     Active Substance: INFLIXIMAB-DYYB
     Dosage: 200 MG, EVERY 6 WEEK
     Route: 042
     Dates: start: 20221115
  5. INFLECTRA [Suspect]
     Active Substance: INFLIXIMAB-DYYB
     Dosage: 200 MG, EVERY 6 WEEK
     Route: 042
     Dates: start: 20230111
  6. CELEBREX [Concomitant]
     Active Substance: CELECOXIB
     Dosage: UNK
  7. METHOTREXATE [Concomitant]
     Active Substance: METHOTREXATE
     Dosage: 1 DF, WEEKLY (6 TABLETS)
     Route: 048

REACTIONS (3)
  - Sinusitis bacterial [Unknown]
  - Inappropriate schedule of product administration [Unknown]
  - Off label use [Unknown]

NARRATIVE: CASE EVENT DATE: 20191010
